FAERS Safety Report 7703944-8 (Version None)
Quarter: 2011Q3

REPORT INFORMATION
  Report Type: 
  Country: None (occurrence: None)
  Receive Date: 20110823
  Receipt Date: 20110815
  Transmission Date: 20111222
  Serious: Yes (Hospitalization, Other)
  Sender: FDA-Public Use
  Company Number: US-ROCHE-797655

PATIENT
  Sex: Female

DRUGS (2)
  1. XELODA [Suspect]
     Dosage: 2 TABLETS IN MORNING AND 2 IN EVENING. ONE WEEK TREATMENT/ ONE WEEK OFF
     Route: 048
     Dates: start: 20110728, end: 20110815
  2. XELODA [Suspect]
     Dosage: 3 TABLETS IN MORNING AND 2 IN EVENING. 2 WEEKS TREATMENT/ ONE WEEK OFF
     Route: 048
     Dates: start: 20110614, end: 20110728

REACTIONS (3)
  - DISEASE PROGRESSION [None]
  - RED BLOOD CELL COUNT DECREASED [None]
  - PLATELET COUNT DECREASED [None]
